FAERS Safety Report 8886309 (Version 3)
Quarter: 2012Q4

REPORT INFORMATION
  Report Type: 
  Country: GB (occurrence: GB)
  Receive Date: 20121105
  Receipt Date: 20121226
  Transmission Date: 20130627
  Serious: Yes (Other)
  Sender: FDA-Public Use
  Company Number: GB-ROCHE-1151989

PATIENT
  Age: 47 Year
  Sex: Female
  Weight: 76 kg

DRUGS (6)
  1. OMALIZUMAB [Suspect]
     Indication: ASTHMA
     Route: 058
     Dates: start: 20120822
  2. OMALIZUMAB [Suspect]
     Dosage: 120 (unit unspecifed)
     Route: 058
  3. SERETIDE [Concomitant]
  4. TIOTROPIUM [Concomitant]
  5. TERBUTALINE [Concomitant]
  6. PREDNISOLONE [Concomitant]

REACTIONS (2)
  - Abdominal pain [Not Recovered/Not Resolved]
  - Rectal haemorrhage [Recovered/Resolved]
